FAERS Safety Report 9006814 (Version 1)
Quarter: 2013Q1

REPORT INFORMATION
  Report Type: Spontaneous
  Country: NL (occurrence: NL)
  Receive Date: 20130110
  Receipt Date: 20130110
  Transmission Date: 20140127
  Serious: Yes (Life-Threatening, Other)
  Sender: FDA-Public Use
  Company Number: PHHY2013NL002058

PATIENT
  Sex: Male
  Weight: 75 kg

DRUGS (15)
  1. CARBAMAZEPINE [Suspect]
     Indication: GUILLAIN-BARRE SYNDROME
     Dosage: 1 DF, DAILY
     Dates: start: 20121208, end: 20121224
  2. MICONAZOLE [Suspect]
     Indication: SKIN DISORDER
     Dosage: 1 DF, UNK
     Dates: start: 20121214
  3. CHLORHEXIDINE DIACETATE [Concomitant]
     Dosage: 1 DF, UNK
  4. SIMPLEX [Concomitant]
     Dosage: 1 DF, UNK
  5. AMITRIPTYLINE [Concomitant]
     Dosage: 25 MG, UNK
  6. ROBINUL [Concomitant]
     Dosage: 0.2 MG/ML, UNK
  7. FENTANYL [Concomitant]
     Dosage: 0.05 MG/ML, UNK
  8. CEFTRIAXONE [Concomitant]
     Dosage: 2000 MG, UNK
  9. DORMICUM [Concomitant]
     Dosage: 5 MG/ML, UNK
  10. OXAZEPAM [Concomitant]
     Dosage: 10 MG, UNK
  11. TEMESTA [Concomitant]
     Dosage: 1 MG, UNK
  12. SELOKEEN [Concomitant]
     Dosage: 50 MG, UNK
  13. LYRICA [Concomitant]
     Dosage: 150 MG, UNK
  14. FRAXIPARINE [Concomitant]
     Dosage: UNK
  15. MOVICOLON [Concomitant]

REACTIONS (2)
  - Thrombocytopenia [Recovered/Resolved]
  - Drug interaction [Unknown]
